FAERS Safety Report 23759561 (Version 1)
Quarter: 2024Q2

REPORT INFORMATION
  Report Type: Spontaneous
  Country: US (occurrence: None)
  Receive Date: 20240418
  Receipt Date: 20240418
  Transmission Date: 20240717
  Serious: No
  Sender: FDA-Public Use
  Company Number: US-ROCHE-3297084

PATIENT

DRUGS (1)
  1. ESBRIET [Suspect]
     Active Substance: PIRFENIDONE
     Indication: Product used for unknown indication
     Dosage: THREE PILLS DAILY
     Route: 065

REACTIONS (4)
  - Illness [Unknown]
  - Ill-defined disorder [Unknown]
  - Feeling hot [Unknown]
  - Feeling cold [Unknown]
